FAERS Safety Report 7014825-X (Version None)
Quarter: 2010Q3

REPORT INFORMATION
  Report Type: 
  Country: None (occurrence: None)
  Receive Date: 20100927
  Receipt Date: 20091104
  Transmission Date: 20110219
  Serious: No
  Sender: FDA-Public Use
  Company Number: US-MYLANLABS-2009S1003206

PATIENT
  Age: 65 Year
  Sex: Female

DRUGS (9)
  1. TRIAMTERENE AND HYDROCHLOROTHIAZIDE TABLETS, USP [Suspect]
     Indication: BLOOD PRESSURE INCREASED
     Route: 048
     Dates: start: 20081201, end: 20090101
  2. TRIAMTERENE AND HYDROCHLOROTHIAZIDE TABLETS, USP [Suspect]
     Route: 048
     Dates: start: 20081201, end: 20090101
  3. TRIAMTERENE AND HYDROCHLOROTHIAZIDE TABLETS, USP [Suspect]
     Route: 048
  4. TRIAMTERENE AND HYDROCHLOROTHIAZIDE TABLETS, USP [Suspect]
     Route: 048
  5. FUROSEMIDE TABLETS, USP [Suspect]
     Indication: OEDEMA PERIPHERAL
     Route: 048
     Dates: start: 20090801
  6. OMEPRAZOLE [Concomitant]
  7. VOLTAREN [Concomitant]
  8. IRON [Concomitant]
  9. AMLODIPINE [Concomitant]
     Route: 048
     Dates: start: 20090201

REACTIONS (3)
  - ALOPECIA [None]
  - HEART RATE INCREASED [None]
  - HEART RATE IRREGULAR [None]
